FAERS Safety Report 5932921-2 (Version None)
Quarter: 2008Q4

REPORT INFORMATION
  Report Type: 
  Country: None (occurrence: None)
  Receive Date: 20081028
  Receipt Date: 20081021
  Transmission Date: 20090506
  Serious: Yes (Life-Threatening, Hospitalization)
  Sender: FDA-Public Use
  Company Number: GB-TEVA-179343ISR

PATIENT
  Age: 4 Year
  Sex: Male
  Weight: 20 kg

DRUGS (1)
  1. METOCLOPRAMIDE [Suspect]
     Indication: VOMITING
     Route: 048
     Dates: start: 20080523, end: 20080525

REACTIONS (2)
  - EOSINOPHILIA [None]
  - HYPOALBUMINAEMIA [None]
